FAERS Safety Report 9052233 (Version 6)
Quarter: 2013Q3

REPORT INFORMATION
  Report Type: Report from Study
  Country: AU (occurrence: AU)
  Receive Date: 20130206
  Receipt Date: 20130819
  Transmission Date: 20140515
  Serious: Yes (Death, Hospitalization)
  Sender: FDA-Public Use
  Company Number: PHHY2013AU006973

PATIENT
  Age: 78 Year
  Sex: Female

DRUGS (2)
  1. SANDOSTATIN LAR [Suspect]
     Indication: CARCINOID SYNDROME
     Dosage: 40 MG, UNK
     Route: 030
  2. SANDOSTATIN LAR [Suspect]
     Dosage: 60 MG, UNK
     Route: 030
     Dates: start: 20130430

REACTIONS (8)
  - Death [Fatal]
  - Local swelling [Not Recovered/Not Resolved]
  - Oedema [Not Recovered/Not Resolved]
  - Dyspnoea [Not Recovered/Not Resolved]
  - Waist circumference increased [Not Recovered/Not Resolved]
  - Pallor [Not Recovered/Not Resolved]
  - Ascites [Unknown]
  - Malaise [Not Recovered/Not Resolved]
